FAERS Safety Report 5254206-2 (Version None)
Quarter: 2007Q1

REPORT INFORMATION
  Report Type: 
  Country: None (occurrence: None)
  Receive Date: 20070302
  Receipt Date: 20070221
  Transmission Date: 20070707
  Serious: Yes (Hospitalization)
  Sender: FDA-Public Use
  Company Number: 200710413EU

PATIENT
  Age: 50 Year
  Sex: Female

DRUGS (2)
  1. NICORETTE [Suspect]
     Indication: SMOKING CESSATION THERAPY
     Dosage: 2MG SINGLE DOSE
     Route: 048
     Dates: start: 20070108, end: 20070108
  2. NO CONCURRENT MEDICATION [Concomitant]

REACTIONS (6)
  - GAIT DISTURBANCE [None]
  - HEADACHE [None]
  - INTRACRANIAL ANEURYSM [None]
  - SPEECH DISORDER [None]
  - SUBARACHNOID HAEMORRHAGE [None]
  - VOMITING [None]
